FAERS Safety Report 5207233-5 (Version None)
Quarter: 2007Q1

REPORT INFORMATION
  Report Type: 
  Country: None (occurrence: None)
  Receive Date: 20070112
  Receipt Date: 20070104
  Transmission Date: 20070707
  Serious: Yes (Other)
  Sender: FDA-Public Use
  Company Number: 2007PK00044

PATIENT
  Age: 34 Year
  Sex: Female

DRUGS (6)
  1. NEXIUM [Suspect]
     Route: 048
  2. ASACOL [Suspect]
     Indication: CROHN'S DISEASE
     Route: 048
  3. LORAZEPAM [Concomitant]
     Route: 048
  4. ZOLPIDEM TARTRATE [Concomitant]
     Route: 048
  5. PONSTAN [Concomitant]
     Route: 048
  6. DAFALGAN [Concomitant]
     Route: 048

REACTIONS (2)
  - DRUG EXPOSURE DURING PREGNANCY [None]
  - FOETAL GROWTH RETARDATION [None]
